FAERS Safety Report 6043282-5 (Version None)
Quarter: 2009Q1

REPORT INFORMATION
  Report Type: 
  Country: None (occurrence: None)
  Receive Date: 20090119
  Receipt Date: 20090109
  Transmission Date: 20090719
  Serious: Yes (Hospitalization)
  Sender: FDA-Public Use
  Company Number: US-BAXTER-2009BH000549

PATIENT
  Age: 72 Year
  Sex: Female

DRUGS (4)
  1. DIANEAL [Suspect]
     Indication: PERITONEAL DIALYSIS
     Route: 033
     Dates: start: 20050101
  2. DIANEAL [Suspect]
     Indication: PERITONEAL DIALYSIS
     Route: 033
     Dates: start: 20050101
  3. PRANDIN [Concomitant]
     Indication: DIABETES MELLITUS
     Route: 065
  4. STARLIX [Concomitant]
     Indication: DIABETES MELLITUS
     Route: 065

REACTIONS (5)
  - ATRIAL FIBRILLATION [None]
  - BLOOD GLUCOSE FLUCTUATION [None]
  - DEHYDRATION [None]
  - HYPOTENSION [None]
  - MALAISE [None]
